FAERS Safety Report 21790664 (Version 1)
Quarter: 2022Q4

REPORT INFORMATION
  Report Type: Report from Study
  Country: US (occurrence: US)
  Receive Date: 20221228
  Receipt Date: 20221228
  Transmission Date: 20230113
  Serious: No
  Sender: FDA-Public Use
  Company Number: US-CLOVIS ONCOLOGY-CLO-2022-000827

PATIENT
  Sex: Female

DRUGS (1)
  1. RUBRACA [Suspect]
     Active Substance: RUCAPARIB CAMSYLATE
     Indication: Ovarian cancer
     Dosage: 300 MILLIGRAM, BID
     Route: 048
     Dates: start: 20220217

REACTIONS (6)
  - Cognitive disorder [Unknown]
  - Peripheral swelling [Unknown]
  - Sinusitis [Unknown]
  - White blood cell count decreased [Unknown]
  - Nausea [Unknown]
  - Product dose omission in error [Unknown]
